FAERS Safety Report 5604184-9 (Version None)
Quarter: 2008Q1

REPORT INFORMATION
  Report Type: 
  Country: None (occurrence: None)
  Receive Date: 20080123
  Receipt Date: 20080114
  Transmission Date: 20080703
  Serious: Yes (Death)
  Sender: FDA-Public Use
  Company Number: B0503093A

PATIENT
  Age: 44 Year
  Sex: Female

DRUGS (13)
  1. BUPROPION HYDROCHLORIDE [Suspect]
     Dosage: ORAL
     Route: 048
  2. DULOXETINE (FORMULATION UNKNOWN) (DULOXETINE) [Suspect]
     Dosage: ORAL
     Route: 048
  3. ETHANOL (FORMULATION UNKNOWN) (ALCOHOL) [Suspect]
  4. THYROID MEDICATION (FORMULATION UNKNOWN) (THYROID MEDICATION) [Suspect]
     Dosage: ORAL
     Route: 048
  5. TRAZODONE HCL [Suspect]
     Dosage: ORAL
     Route: 048
  6. LAMOTRIGINE [Suspect]
     Dosage: ORAL
     Route: 048
  7. HYDROXYZINE [Suspect]
     Dosage: ORAL
     Route: 048
  8. ZIPRASIDONE HCL [Suspect]
     Dosage: ORAL
     Route: 048
  9. CYPROHEPTADINE HCL [Suspect]
     Dosage: ORAL
     Route: 048
  10. BUSPIRONE (FORMULATION UNKNOWN) (BUSPIRONE) [Suspect]
     Dosage: ORAL
     Route: 048
  11. CHLORPROMAZINE HYDROCHLORIDE [Suspect]
     Dosage: ORAL
     Route: 048
  12. PHENOXYMETHYLPENICILLIN K (FORMULATION UNKNOWN) (GENERIC) (PENICILIN V [Suspect]
     Dosage: ORAL
     Route: 048
  13. CHLORDIAZEPOXIDE [Suspect]
     Dosage: ORAL
     Route: 048

REACTIONS (2)
  - CARDIO-RESPIRATORY ARREST [None]
  - COMPLETED SUICIDE [None]
